FAERS Safety Report 7067361-9 (Version None)
Quarter: 2010Q4

REPORT INFORMATION
  Report Type: 
  Country: None (occurrence: None)
  Receive Date: 20101022
  Receipt Date: 20101022
  Transmission Date: 20110411
  Serious: Yes (Hospitalization)
  Sender: FDA-Public Use
  Company Number: None

PATIENT
  Sex: Female
  Weight: 72.57 kg

DRUGS (4)
  1. BEVACIZUMAB [Suspect]
     Dosage: 725 MG
     Dates: end: 20101008
  2. CYCLOPHOSPHAMIDE [Suspect]
     Dosage: 1120 MG
     Dates: end: 20101008
  3. DOXORUBICIN HYDROCHLORIDE [Suspect]
     Dosage: 112 MG
     Dates: end: 20101008
  4. NEULASTA [Suspect]
     Dosage: 6 MG
     Dates: end: 20101009

REACTIONS (2)
  - NEUTROPENIA [None]
  - PYREXIA [None]
